FAERS Safety Report 9753069 (Version 1)
Quarter: 2013Q4

REPORT INFORMATION
  Report Type: Spontaneous
  Country: DE (occurrence: DE)
  Receive Date: 20131213
  Receipt Date: 20131213
  Transmission Date: 20140711
  Serious: Yes (Other)
  Sender: FDA-Public Use
  Company Number: DE-PFIZER INC-2013353242

PATIENT
  Age: 33 Year
  Sex: Female
  Weight: 60 kg

DRUGS (2)
  1. PREGABALIN [Suspect]
     Indication: EUPHORIC MOOD
     Dosage: 1500 MG, IN ONE DAY
     Route: 048
     Dates: start: 20131114
  2. POLAMIDON [Concomitant]
     Indication: SUPPLEMENTATION THERAPY
     Dosage: 8 ML, UNK
     Route: 048
     Dates: start: 201007

REACTIONS (5)
  - Intentional overdose [Unknown]
  - Drug abuse [Unknown]
  - Liver function test abnormal [Recovering/Resolving]
  - Psychomotor retardation [Recovering/Resolving]
  - Speech disorder [Recovering/Resolving]
